FAERS Safety Report 4426518-3 (Version None)
Quarter: 2004Q3

REPORT INFORMATION
  Report Type: 
  Country: None (occurrence: None)
  Receive Date: 20040811
  Receipt Date: 20040727
  Transmission Date: 20050211
  Serious: Yes (Hospitalization)
  Sender: FDA-Public Use
  Company Number: FR_040704512

PATIENT
  Age: 88 Year
  Sex: Female

DRUGS (5)
  1. HUMULIN-HUMAN INSULIN [Suspect]
     Indication: DIABETES MELLITUS
     Dosage: 18 IU DAY
     Dates: end: 20040302
  2. APROVEL (IRBESARTAN) [Concomitant]
  3. BISOPROLOL FUMARATE [Concomitant]
  4. LASIX [Concomitant]
  5. PRAVASTATIN [Concomitant]

REACTIONS (8)
  - ASTHENIA [None]
  - CARDIAC FAILURE [None]
  - CONFUSIONAL STATE [None]
  - EPILEPSY [None]
  - HYPERTHYROIDISM [None]
  - HYPOGLYCAEMIA [None]
  - PSYCHOMOTOR RETARDATION [None]
  - RESPIRATION ABNORMAL [None]
